FAERS Safety Report 9815735 (Version 1)
Quarter: 2014Q1

REPORT INFORMATION
  Report Type: Report from Study
  Country: US (occurrence: US)
  Receive Date: 20140114
  Receipt Date: 20140114
  Transmission Date: 20141002
  Serious: Yes (Other)
  Sender: FDA-Public Use
  Company Number: PHEH2014US000659

PATIENT
  Age: 28 Year
  Sex: Female

DRUGS (2)
  1. EXTAVIA [Suspect]
     Indication: MULTIPLE SCLEROSIS
     Dosage: UNK UKN, UNK
     Route: 058
     Dates: start: 2011
  2. EXTAVIA [Suspect]
     Dosage: 0.25 MG, UNK
     Route: 058

REACTIONS (3)
  - Gait disturbance [Unknown]
  - Hypoaesthesia [Not Recovered/Not Resolved]
  - Maternal exposure during pregnancy [Unknown]
